FAERS Safety Report 4823216-9 (Version None)
Quarter: 2005Q4

REPORT INFORMATION
  Report Type: 
  Country: None (occurrence: None)
  Receive Date: 20051108
  Receipt Date: 20051108
  Transmission Date: 20060501
  Serious: Yes (Hospitalization)
  Sender: FDA-Public Use
  Company Number: None

PATIENT
  Sex: Female
  Weight: 60.9 kg

DRUGS (7)
  1. REQUIP [Suspect]
     Indication: PARKINSON'S DISEASE
     Dosage: 0.25MG TID PO  8A, 2P, 8P
     Route: 048
     Dates: end: 20050811
  2. LASIX [Concomitant]
  3. LEVOTHROID [Concomitant]
  4. K+ [Concomitant]
  5. PROPRANOLOL [Concomitant]
  6. COLACE [Concomitant]
  7. TYLENOL ES [Concomitant]

REACTIONS (3)
  - CONFUSIONAL STATE [None]
  - LETHARGY [None]
  - SOMNOLENCE [None]
